FAERS Safety Report 26210303 (Version 1)
Quarter: 2025Q4

REPORT INFORMATION
  Report Type: Spontaneous
  Country: EU (occurrence: EU)
  Receive Date: 20251229
  Receipt Date: 20251229
  Transmission Date: 20260118
  Serious: Yes (Hospitalization, Other)
  Sender: NOVO NORDISK
  Company Number: None

PATIENT
  Age: 23 Year
  Sex: Female

DRUGS (5)
  1. WEGOVY [Suspect]
     Active Substance: SEMAGLUTIDE
     Indication: Overweight
     Dosage: 1 MG, QW
     Route: 058
     Dates: start: 202508, end: 20251124
  2. GABAMED [GABAPENTIN] [Concomitant]
     Indication: Neuralgia
     Dosage: 300 MG
     Dates: start: 20240101
  3. SERTRALIN ^ACCORD^ [Concomitant]
     Indication: Anxiety
     Dosage: 200 MG, QD
     Dates: start: 202310
  4. QUETIAPINE [Concomitant]
     Active Substance: QUETIAPINE
     Indication: Mental disorder
     Dosage: 100 MG, QD
     Dates: start: 202302
  5. SUMATRIPTAN [Concomitant]
     Active Substance: SUMATRIPTAN
     Indication: Migraine
     Dosage: UNK
     Dates: start: 201801

REACTIONS (6)
  - Intracranial pressure increased [Recovering/Resolving]
  - Papilloedema [Unknown]
  - Headache [Unknown]
  - Nausea [Unknown]
  - Vomiting [Unknown]
  - Dizziness [Unknown]

NARRATIVE: CASE EVENT DATE: 20251101
